FAERS Safety Report 7445118-4 (Version None)
Quarter: 2011Q2

REPORT INFORMATION
  Report Type: 
  Country: None (occurrence: None)
  Receive Date: 20110420
  Receipt Date: 20110418
  Transmission Date: 20111010
  Serious: Yes (Death, Life-Threatening)
  Sender: FDA-Public Use
  Company Number: 2011SP017171

PATIENT
  Age: 51 Year
  Sex: Female
  Weight: 55 kg

DRUGS (5)
  1. TENORMIN [Concomitant]
  2. APROVEL [Concomitant]
  3. TEMOZOLOMIDE [Suspect]
     Indication: GLIOBLASTOMA MULTIFORME
     Dosage: 120 MG; PO
     Route: 048
     Dates: start: 20101011, end: 20110125
  4. CINALONG [Concomitant]
  5. RAMOSETRON [Concomitant]

REACTIONS (3)
  - GLIOBLASTOMA MULTIFORME [None]
  - HYDROCEPHALUS [None]
  - DISEASE PROGRESSION [None]
